FAERS Safety Report 7818584-X (Version None)
Quarter: 2011Q4

REPORT INFORMATION
  Report Type: 
  Country: None (occurrence: None)
  Receive Date: 20111017
  Receipt Date: 20111007
  Transmission Date: 20120403
  Serious: Yes (Other)
  Sender: FDA-Public Use
  Company Number: US-ASTRAZENECA-2011SE60730

PATIENT
  Sex: Female

DRUGS (4)
  1. LORTAB [Concomitant]
     Indication: PAIN
     Dosage: 1 TO 2 EVERY 6 HOURS AS NEEDED
     Route: 048
  2. SYMBICORT [Suspect]
     Dosage: 160/80, UNKNOWN
     Route: 055
  3. LISINOPRIL [Suspect]
     Route: 048
  4. PROCARDIA [Suspect]
     Route: 048

REACTIONS (3)
  - ULNA FRACTURE [None]
  - RADIUS FRACTURE [None]
  - FALL [None]
